FAERS Safety Report 8957213 (Version 4)
Quarter: 2013Q1

REPORT INFORMATION
  Report Type: Report from Study
  Country: US (occurrence: US)
  Receive Date: 20121211
  Receipt Date: 20130118
  Transmission Date: 20140127
  Serious: Yes (Hospitalization)
  Sender: FDA-Public Use
  Company Number: US-ROCHE-1165305

PATIENT
  Age: 47 Year
  Sex: Male
  Weight: 80.81 kg

DRUGS (15)
  1. PEG-INTERFERON ALFA 2A [Suspect]
     Indication: CHRONIC HEPATITIS C
     Route: 058
     Dates: start: 20120813, end: 20121202
  2. PEG-INTERFERON ALFA 2A [Suspect]
     Route: 058
     Dates: start: 20121209
  3. RIBAVIRIN [Suspect]
     Indication: CHRONIC HEPATITIS C
     Route: 048
     Dates: start: 20120813
  4. BLINDED TMC435 (NS3/4A PROTEASE INHIBITOR) [Suspect]
     Indication: CHRONIC HEPATITIS C
     Route: 065
     Dates: start: 20120813, end: 20121105
  5. TELAPREVIR [Suspect]
     Indication: CHRONIC HEPATITIS C
     Route: 065
     Dates: start: 20120813, end: 20121105
  6. METOPROLOL TARTRATE [Concomitant]
     Route: 065
  7. METOPROLOL TARTRATE [Concomitant]
     Route: 065
  8. OMEPRAZOLE [Concomitant]
  9. BENADRYL [Concomitant]
     Route: 065
  10. VITAMIN D [Concomitant]
  11. GEODON [Concomitant]
  12. CITALOPRAM [Concomitant]
  13. BUPROPION [Concomitant]
  14. TRAZODONE [Concomitant]
  15. FLECAINIDE [Concomitant]
     Indication: VENTRICULAR EXTRASYSTOLES
     Route: 065
     Dates: start: 20121010

REACTIONS (1)
  - Syncope [Recovered/Resolved]
